FAERS Safety Report 6790147-7 (Version None)
Quarter: 2010Q2

REPORT INFORMATION
  Report Type: 
  Country: None (occurrence: None)
  Receive Date: 20100624
  Receipt Date: 20100611
  Transmission Date: 20101027
  Serious: Yes (Other)
  Sender: FDA-Public Use
  Company Number: PHHY2010US32244

PATIENT
  Sex: Male
  Weight: 97.959 kg

DRUGS (16)
  1. CLOZAPINE [Suspect]
     Indication: SCHIZOPHRENIA, PARANOID TYPE
     Dosage: 50 MG IN THE MORNING AND 100 MG THREE TIMES A DAY
     Route: 048
     Dates: start: 20100323, end: 20100505
  2. TRILEPTAL [Interacting]
     Indication: SCHIZOPHRENIA, PARANOID TYPE
     Dosage: 900 MG IN THE MORNING AND 1200 MG AT BEDTIME
     Dates: start: 20100311, end: 20100505
  3. TRILEPTAL [Interacting]
     Indication: AFFECTIVE DISORDER
  4. LITHIUM CARBONATE [Concomitant]
     Dosage: 300 MG, TID
  5. TRIAMCINOLONE [Concomitant]
     Dosage: ONE APPLICATION TWICE A DAY
  6. FLUPHENAZINE [Concomitant]
     Dosage: 10 MG, BID
  7. ACETAMINOPHEN [Concomitant]
     Dosage: 650 MG, TID
  8. FOLIC ACID [Concomitant]
     Dosage: 1 MG DAILY
  9. NICOTINE [Concomitant]
     Dosage: 2 MG, EVERY HOUR AS NEEDED
  10. MILK OF MAGNESIA TAB [Concomitant]
     Dosage: 30 ML, AS NEEDED
  11. ALAMAG [Concomitant]
     Dosage: 30 ML, EVERY FOUR HOURS AS NEEDED
  12. HYDROCERIN [Concomitant]
     Dosage: ONE APPLICATION AS DIRECTED
  13. TRAZODONE HYDROCHLORIDE [Concomitant]
     Dosage: 50 MG, AT BEDTIME AS NEEDED
  14. ATENOLOL [Concomitant]
     Dosage: 25 MG, DAILY
  15. CLONAZEPAM [Concomitant]
     Dosage: 1 MG, EVENING, 2 MG DAILY
  16. GLYCOPYRROLATE [Concomitant]
     Dosage: 1 MG, FOUR TIMES DAILY

REACTIONS (2)
  - DRUG INTERACTION [None]
  - GRANULOCYTOPENIA [None]
